FAERS Safety Report 21888048 (Version 1)
Quarter: 2023Q1

REPORT INFORMATION
  Report Type: Report from Study
  Country: CA (occurrence: CA)
  Receive Date: 20230120
  Receipt Date: 20230120
  Transmission Date: 20230417
  Serious: Yes (Other)
  Sender: FDA-Public Use
  Company Number: CA-CELLTRION INC.-2023CA001105

PATIENT

DRUGS (2)
  1. TRUXIMA [Suspect]
     Active Substance: RITUXIMAB-ABBS
     Indication: Waldenstrom^s macroglobulinaemia
     Dosage: 375 MG/M2, (CYCLE #2 DAY 1, 8, 15, 22 OF 35 DAYS CYCLE)
  2. TRUXIMA [Suspect]
     Active Substance: RITUXIMAB-ABBS
     Dosage: 375 MG/M2, (CYCLE #4 DAY 1, 8, 15, 22 OF 35 DAYS CYCLE)

REACTIONS (4)
  - Waldenstrom^s macroglobulinaemia [Unknown]
  - Off label use [Unknown]
  - Insurance issue [Unknown]
  - Inability to afford medication [Unknown]
